FAERS Safety Report 5301908-5 (Version None)
Quarter: 2007Q2

REPORT INFORMATION
  Report Type: 
  Country: None (occurrence: None)
  Receive Date: 20070419
  Receipt Date: 20070410
  Transmission Date: 20071010
  Serious: Yes (Hospitalization)
  Sender: FDA-Public Use
  Company Number: PHRM2007FR01244

PATIENT
  Age: 71 Year
  Sex: Female

DRUGS (5)
  1. VOLTAREN [Suspect]
     Dosage: 75 MG, QD
     Route: 048
     Dates: end: 20070309
  2. ENBREL [Suspect]
     Dosage: 50 MG, QW
     Route: 058
     Dates: start: 20050315, end: 20070306
  3. ARAVA [Suspect]
     Dosage: 10 MG, QD
     Route: 048
     Dates: start: 20040615
  4. CORTANCYL [Suspect]
     Dosage: 5 MG, QD
     Route: 048
  5. ESOMEPRAZOLE MAGNESIUM [Concomitant]

REACTIONS (9)
  - JOINT DESTRUCTION [None]
  - NUCLEAR MAGNETIC RESONANCE IMAGING ABNORMAL [None]
  - OSTEITIS [None]
  - OSTEONECROSIS [None]
  - PAIN IN EXTREMITY [None]
  - RED BLOOD CELL SEDIMENTATION RATE INCREASED [None]
  - WHITE BLOOD CELL COUNT INCREASED [None]
  - WOUND SECRETION [None]
  - WOUND SEPSIS [None]
